FAERS Safety Report 8469303-8 (Version None)
Quarter: 2012Q2

REPORT INFORMATION
  Report Type: 
  Country: None (occurrence: None)
  Receive Date: 20120626
  Receipt Date: 20120613
  Transmission Date: 20120825
  Serious: No
  Sender: FDA-Public Use
  Company Number: US-ASTRAZENECA-2012SE39773

PATIENT
  Age: 71 Year
  Sex: Male
  Weight: 74.8 kg

DRUGS (7)
  1. ASPIRIN [Concomitant]
  2. LIBRAX [Concomitant]
  3. VITAMIN TAB [Concomitant]
  4. SYNTHROID [Concomitant]
     Indication: HYPOTHYROIDISM
  5. FISH OIL [Concomitant]
  6. CRESTOR [Suspect]
     Indication: BLOOD CHOLESTEROL INCREASED
     Route: 048
     Dates: start: 20120528
  7. PROTONIX [Concomitant]

REACTIONS (1)
  - DIARRHOEA [None]
